FAERS Safety Report 9087624 (Version 2)
Quarter: 2013Q1

REPORT INFORMATION
  Report Type: Spontaneous
  Country: NL (occurrence: NL)
  Receive Date: 20130201
  Receipt Date: 20130219
  Transmission Date: 20140127
  Serious: Yes (Life-Threatening, Other)
  Sender: FDA-Public Use
  Company Number: NL-JNJFOC-20130111071

PATIENT
  Age: 81 Year
  Sex: Female

DRUGS (17)
  1. SANDOZ FENTANYL TRANSDERMAL SYSTEM [Suspect]
     Indication: PAIN
     Route: 058
     Dates: start: 20121001, end: 20130106
  2. COTRIMOXAZOLE [Suspect]
     Indication: URINARY TRACT INFECTION
     Dosage: 160/800 MG
     Route: 065
     Dates: start: 20121231, end: 20130104
  3. ALENDRONINEZUUR [Concomitant]
     Route: 065
  4. LOSARTAN [Concomitant]
     Route: 048
     Dates: start: 20111114
  5. METOPROLOL SUCCINATE [Concomitant]
     Route: 048
  6. UNKNOWN MEDICATION [Concomitant]
     Route: 065
  7. DENOREX [Concomitant]
     Route: 065
  8. OMEPRAZOL ACTAVIS [Concomitant]
     Route: 065
  9. METFORMIN HYDROCHLORIDE [Concomitant]
     Route: 065
  10. SIMVASTATINE ACTAVIS [Concomitant]
     Route: 065
  11. ACETYLSALICYLZUUR CARDIO [Concomitant]
     Route: 065
  12. LACTULOSESTROOP [Concomitant]
     Dosage: 670 MG/ML (500 MG/G)
     Route: 065
  13. PARACETAMOL [Concomitant]
     Route: 065
  14. COLECALCIFEROL [Concomitant]
     Route: 048
  15. CRANBERRY KRING CAPS [Concomitant]
     Route: 065
  16. ISORDIL [Concomitant]
     Route: 065
  17. SYNAPAUSE [Concomitant]
     Route: 065

REACTIONS (4)
  - Grand mal convulsion [Recovering/Resolving]
  - Miosis [Recovering/Resolving]
  - Dehydration [Unknown]
  - Incorrect route of drug administration [Unknown]
